FAERS Safety Report 20640110 (Version 1)
Quarter: 2022Q1

REPORT INFORMATION
  Report Type: Spontaneous
  Country: DZ (occurrence: DZ)
  Receive Date: 20220326
  Receipt Date: 20220326
  Transmission Date: 20220423
  Serious: Yes (Death)
  Sender: FDA-Public Use
  Company Number: DZ-BoehringerIngelheim-2022-BI-159900

PATIENT
  Age: 70 Year
  Sex: Male

DRUGS (1)
  1. METALYSE [Suspect]
     Active Substance: TENECTEPLASE
     Indication: Myocardial infarction
     Route: 042
     Dates: start: 20220313

REACTIONS (1)
  - Death [Fatal]
